FAERS Safety Report 10143010 (Version 1)
Quarter: 2014Q2

REPORT INFORMATION
  Report Type: Spontaneous
  Country: US (occurrence: None)
  Receive Date: 20140429
  Receipt Date: 20140429
  Transmission Date: 20141212
  Serious: No
  Sender: FDA-Public Use
  Company Number: None

PATIENT
  Age: 6 Year
  Sex: Male
  Weight: 20.87 kg

DRUGS (1)
  1. GUANFACINE [Suspect]
     Route: 048

REACTIONS (2)
  - Hallucination, visual [None]
  - Formication [None]
